FAERS Safety Report 8532218-0 (Version None)
Quarter: 2012Q3

REPORT INFORMATION
  Report Type: 
  Country: None (occurrence: None)
  Receive Date: 20120723
  Receipt Date: 20120713
  Transmission Date: 20120928
  Serious: Yes (Death)
  Sender: FDA-Public Use
  Company Number: PH-BAXTER-2012BAX011321

PATIENT
  Sex: Female

DRUGS (4)
  1. DIANEAL PD-2 W/ DEXTROSE 1.5% [Suspect]
     Route: 033
     Dates: start: 20120306
  2. AMLODIPINE [Concomitant]
     Route: 065
  3. DIANEAL PD-2 W/ DEXTROSE 4.25% [Suspect]
     Route: 033
     Dates: start: 20120603
  4. FERROUS SULFATE TAB [Concomitant]
     Route: 065

REACTIONS (3)
  - RENAL FAILURE CHRONIC [None]
  - HYPERTENSION [None]
  - CARDIAC ARREST [None]
